FAERS Safety Report 7483217-1 (Version None)
Quarter: 2011Q2

REPORT INFORMATION
  Report Type: 
  Country: None (occurrence: None)
  Receive Date: 20110516
  Receipt Date: 20100616
  Transmission Date: 20111010
  Serious: No
  Sender: FDA-Public Use
  Company Number: US-ALLERGAN-1007894US

PATIENT
  Sex: Female

DRUGS (1)
  1. ZYMAR [Suspect]
     Indication: EYE INFECTION BACTERIAL
     Dosage: 1 GTT, QID
     Route: 047

REACTIONS (1)
  - MUSCLE TWITCHING [None]
